FAERS Safety Report 13579073 (Version 3)
Quarter: 2017Q4

REPORT INFORMATION
  Report Type: Report from Study
  Country: US (occurrence: US)
  Receive Date: 20170524
  Receipt Date: 20171006
  Transmission Date: 20180320
  Serious: Yes (Other)
  Sender: FDA-Public Use
  Company Number: US-AMGEN-USASL2017076608

PATIENT
  Age: 53 Year
  Sex: Female

DRUGS (3)
  1. REPATHA [Suspect]
     Active Substance: EVOLOCUMAB
     Indication: BLOOD CHOLESTEROL INCREASED
     Dosage: 140 MG,  EVERY OTHER MONTH FOR SIX MONTHS
     Route: 065
  2. REPATHA [Suspect]
     Active Substance: EVOLOCUMAB
     Dosage: 140 MG, Q2WK
     Route: 065
     Dates: start: 201612
  3. REPATHA [Suspect]
     Active Substance: EVOLOCUMAB
     Indication: HYPERCHOLESTEROLAEMIA
     Dosage: 140 MG, Q2WK
     Route: 065
     Dates: start: 2016

REACTIONS (4)
  - Injection site discomfort [Unknown]
  - Musculoskeletal discomfort [Unknown]
  - Dizziness [Not Recovered/Not Resolved]
  - Ovarian mass [Unknown]

NARRATIVE: CASE EVENT DATE: 2016
